FAERS Safety Report 23314042 (Version 1)
Quarter: 2023Q4

REPORT INFORMATION
  Report Type: Spontaneous
  Country: US (occurrence: US)
  Receive Date: 20231219
  Receipt Date: 20231219
  Transmission Date: 20240110
  Serious: Yes (Other)
  Sender: FDA-Public Use
  Company Number: US-BEH-2023166492

PATIENT
  Sex: Female

DRUGS (30)
  1. HIZENTRA [Suspect]
     Active Substance: HUMAN IMMUNOGLOBULIN G
     Indication: Secondary immunodeficiency
     Dosage: 13 GRAM, QW
     Route: 058
  2. GABAPENTIN [Concomitant]
     Active Substance: GABAPENTIN
  3. MIRTAZAPINE [Concomitant]
     Active Substance: MIRTAZAPINE
  4. GABAPENTIN [Concomitant]
     Active Substance: GABAPENTIN
  5. VALSARTAN AND HYDROCHLOROTHIAZIDE [Concomitant]
     Active Substance: HYDROCHLOROTHIAZIDE\VALSARTAN
  6. BIDIL [Concomitant]
     Active Substance: HYDRALAZINE HYDROCHLORIDE\ISOSORBIDE DINITRATE
  7. PLAVIX [Concomitant]
     Active Substance: CLOPIDOGREL BISULFATE
  8. OMEPRAZOLE [Concomitant]
     Active Substance: OMEPRAZOLE
  9. ALLOPURINOL [Concomitant]
     Active Substance: ALLOPURINOL
  10. ATORVASTATIN [Concomitant]
     Active Substance: ATORVASTATIN
  11. AZELASTINE HYDROCHLORIDE [Concomitant]
     Active Substance: AZELASTINE HYDROCHLORIDE
  12. CHOLECALCIFEROL [Concomitant]
     Active Substance: CHOLECALCIFEROL
  13. COLCHICINE [Concomitant]
     Active Substance: COLCHICINE
  14. CYPROHEPTADINE HYDROCHLORIDE [Concomitant]
     Active Substance: CYPROHEPTADINE HYDROCHLORIDE
  15. DEXILANT [Concomitant]
     Active Substance: DEXLANSOPRAZOLE
  16. FAMOTIDINE [Concomitant]
     Active Substance: FAMOTIDINE
  17. FLUTICASONE [Concomitant]
     Active Substance: FLUTICASONE
  18. FOLIC ACID [Concomitant]
     Active Substance: FOLIC ACID
  19. FUROSEMIDE [Concomitant]
     Active Substance: FUROSEMIDE
  20. GUAIFENESIN [Concomitant]
     Active Substance: GUAIFENESIN
  21. MAGNESIUM OXIDE [Concomitant]
     Active Substance: MAGNESIUM OXIDE
  22. MECLIZINE HYDROCHLORIDE [Concomitant]
     Active Substance: MECLIZINE HYDROCHLORIDE
  23. MIRTAZAPINE [Concomitant]
     Active Substance: MIRTAZAPINE
  24. MONTELUKAST [Concomitant]
     Active Substance: MONTELUKAST SODIUM
  25. NOVOLOG [Concomitant]
     Active Substance: INSULIN ASPART
  26. PREDNISONE [Concomitant]
     Active Substance: PREDNISONE
  27. PROVENTIL HFA [Concomitant]
     Active Substance: ALBUTEROL SULFATE
  28. STIOLTO RESPIMAT [Concomitant]
     Active Substance: OLODATEROL HYDROCHLORIDE\TIOTROPIUM BROMIDE MONOHYDRATE
  29. SYSTANE COMPLETE [Concomitant]
     Active Substance: PROPYLENE GLYCOL
  30. XARELTO [Concomitant]
     Active Substance: RIVAROXABAN

REACTIONS (5)
  - Drug ineffective [Unknown]
  - Injection site discharge [Unknown]
  - Fatigue [Unknown]
  - Respiratory tract infection [Unknown]
  - Pain in extremity [Unknown]

NARRATIVE: CASE EVENT DATE: 20230101
